FAERS Safety Report 6435143-4 (Version None)
Quarter: 2009Q4

REPORT INFORMATION
  Report Type: 
  Country: None (occurrence: None)
  Receive Date: 20091110
  Receipt Date: 20090814
  Transmission Date: 20100525
  Serious: Yes (Other)
  Sender: FDA-Public Use
  Company Number: US-BRISTOL-MYERS SQUIBB COMPANY-14734198

PATIENT
  Age: 7 Decade
  Sex: Female

DRUGS (2)
  1. IXEMPRA KIT [Suspect]
     Indication: BREAST CANCER
     Dates: start: 20090807
  2. BENADRYL [Suspect]
     Indication: PREMEDICATION

REACTIONS (1)
  - ADVERSE DRUG REACTION [None]
